FAERS Safety Report 8819299 (Version 3)
Quarter: 2012Q4

REPORT INFORMATION
  Report Type: 
  Country: CZ (occurrence: CZ)
  Receive Date: 20121001
  Receipt Date: 20121217
  Transmission Date: 20130627
  Serious: Yes (Hospitalization, Other)
  Sender: FDA-Public Use
  Company Number: CZ-BAYER-2012-099506

PATIENT
  Age: 44 Year
  Sex: Female

DRUGS (1)
  1. QLAIRA [Suspect]
     Indication: CONTRACEPTION
     Dosage: 1 DF, QD
     Route: 048
     Dates: start: 201103, end: 201209

REACTIONS (3)
  - Pregnancy on oral contraceptive [Recovered/Resolved]
  - Abortion induced incomplete [None]
  - Drug ineffective [Not Recovered/Not Resolved]
